FAERS Safety Report 23612044 (Version 1)
Quarter: 2024Q1

REPORT INFORMATION
  Report Type: Spontaneous
  Country: GB (occurrence: GB)
  Receive Date: 20240308
  Receipt Date: 20240308
  Transmission Date: 20240410
  Serious: Yes (Hospitalization, Other)
  Sender: FDA-Public Use
  Company Number: GB-PFM-2024-01452

PATIENT
  Age: 61 Year
  Sex: Male

DRUGS (5)
  1. ENCORAFENIB [Suspect]
     Active Substance: ENCORAFENIB
     Indication: Malignant melanoma
     Dosage: 450 MG, QD (1/DAY)
     Route: 065
     Dates: start: 202211
  2. ENCORAFENIB [Suspect]
     Active Substance: ENCORAFENIB
     Dosage: 300 MG, 1X/DAY
     Route: 065
     Dates: start: 202311, end: 202311
  3. ENCORAFENIB [Suspect]
     Active Substance: ENCORAFENIB
     Dosage: 400 MG, 1X/DAY
     Route: 065
     Dates: start: 202401
  4. BINIMETINIB [Suspect]
     Active Substance: BINIMETINIB
     Indication: Malignant melanoma
     Dosage: 45 MG, BID (2/DAY)
     Route: 065
     Dates: start: 202211, end: 202311
  5. BINIMETINIB [Suspect]
     Active Substance: BINIMETINIB
     Dosage: 45 MG, 2X/DAY
     Route: 065
     Dates: start: 202401

REACTIONS (27)
  - Sepsis [Unknown]
  - Cerebrovascular accident [Unknown]
  - Decreased appetite [Unknown]
  - Disorientation [Recovered/Resolved]
  - Hypophagia [Recovered/Resolved]
  - Chills [Recovered/Resolved]
  - Chills [Recovered/Resolved]
  - Chills [Recovered/Resolved]
  - Chills [Recovered/Resolved]
  - Flushing [Recovered/Resolved]
  - Ejection fraction decreased [Recovering/Resolving]
  - Malaise [Unknown]
  - Chest pain [Unknown]
  - Feeling abnormal [Unknown]
  - Vision blurred [Unknown]
  - Dyspnoea exertional [Unknown]
  - Fatigue [Recovered/Resolved]
  - Fatigue [Unknown]
  - Diarrhoea [Unknown]
  - Back pain [Unknown]
  - Vomiting [Recovered/Resolved]
  - Pyrexia [Recovered/Resolved]
  - Pyrexia [Recovered/Resolved]
  - Pyrexia [Recovered/Resolved]
  - Nausea [Recovered/Resolved]
  - Nausea [Unknown]
  - Pruritus [Unknown]

NARRATIVE: CASE EVENT DATE: 20221201
